FAERS Safety Report 9462618 (Version 1)
Quarter: 2013Q3

REPORT INFORMATION
  Report Type: Spontaneous
  Country: TR (occurrence: TR)
  Receive Date: 20130816
  Receipt Date: 20130816
  Transmission Date: 20140515
  Serious: Yes (Death)
  Sender: FDA-Public Use
  Company Number: TR-CUBIST PHARMACEUTICAL, INC.-2013CBST000694

PATIENT
  Sex: 0

DRUGS (2)
  1. CUBICIN [Suspect]
     Indication: ENDOCARDITIS STAPHYLOCOCCAL
     Dosage: 6 MG/KG, 30 MIN INFUSION
     Route: 042
  2. CUBICIN [Suspect]
     Indication: OFF LABEL USE

REACTIONS (1)
  - Haemodynamic instability [Fatal]
